FAERS Safety Report 6981796-1 (Version None)
Quarter: 2010Q3

REPORT INFORMATION
  Report Type: 
  Country: None (occurrence: None)
  Receive Date: 20100914
  Receipt Date: 20091103
  Transmission Date: 20110219
  Serious: No
  Sender: FDA-Public Use
  Company Number: US-PFIZER INC-2009265943

PATIENT
  Sex: Male
  Weight: 93.424 kg

DRUGS (5)
  1. LYRICA [Suspect]
     Indication: HYPOAESTHESIA
     Dosage: 25 MG, 2X/DAY
     Route: 048
     Dates: start: 20090101
  2. SINGULAIR [Concomitant]
     Dosage: UNK
  3. HYDROCODONE [Concomitant]
     Dosage: UNK
  4. PRILOSEC [Concomitant]
     Dosage: UNK
  5. PHENYLEPHRINE [Concomitant]
     Dosage: UNK

REACTIONS (1)
  - FALSE POSITIVE INVESTIGATION RESULT [None]
